FAERS Safety Report 5655882-2 (Version None)
Quarter: 2008Q1

REPORT INFORMATION
  Report Type: 
  Country: None (occurrence: None)
  Receive Date: 20080307
  Receipt Date: 20080227
  Transmission Date: 20080703
  Serious: Yes (Hospitalization)
  Sender: FDA-Public Use
  Company Number: CA-ABBOTT-08P-028-0440221-00

PATIENT
  Sex: Male
  Weight: 113.5 kg

DRUGS (2)
  1. HUMIRA [Suspect]
     Indication: RHEUMATOID ARTHRITIS
  2. HUMIRA [Suspect]
     Dates: start: 20070307

REACTIONS (5)
  - CORONARY ARTERY BYPASS [None]
  - DYSPNOEA [None]
  - HEART RATE IRREGULAR [None]
  - INJECTION SITE PAIN [None]
  - PULMONARY OEDEMA [None]
